FAERS Safety Report 8187207-5 (Version None)
Quarter: 2012Q1

REPORT INFORMATION
  Report Type: 
  Country: None (occurrence: None)
  Receive Date: 20120216
  Receipt Date: 20111201
  Transmission Date: 20120608
  Serious: Yes (Hospitalization)
  Sender: FDA-Public Use
  Company Number: 20111028CINRY2405

PATIENT
  Age: 28 Year
  Sex: Female

DRUGS (2)
  1. CINRYZE [Suspect]
     Indication: PROPHYLAXIS
     Dosage: INTRAVENOUS
     Route: 042
  2. CINRYZE [Suspect]
     Indication: HEREDITARY ANGIOEDEMA
     Dosage: INTRAVENOUS
     Route: 042

REACTIONS (6)
  - DEVICE COMPONENT ISSUE [None]
  - INJECTION SITE PAIN [None]
  - DRUG DOSE OMISSION [None]
  - MEDICAL DEVICE COMPLICATION [None]
  - HEREDITARY ANGIOEDEMA [None]
  - DEVICE DISLOCATION [None]
